FAERS Safety Report 7636938-1 (Version None)
Quarter: 2011Q3

REPORT INFORMATION
  Report Type: 
  Country: None (occurrence: None)
  Receive Date: 20110722
  Receipt Date: 20110722
  Transmission Date: 20111222
  Serious: Yes (Other)
  Sender: FDA-Public Use
  Company Number: None

PATIENT
  Age: 80 Year
  Sex: Male
  Weight: 72.7 kg

DRUGS (2)
  1. PACERONE [Suspect]
     Indication: ARRHYTHMIA
     Dosage: 400MG TWICE DAILY 7 DA ORAL ; 1 DAILY AFTER
     Route: 048
     Dates: start: 20110706, end: 20110713
  2. PACERONE [Suspect]
     Indication: ATRIAL FIBRILLATION
     Dosage: 400MG TWICE DAILY 7 DA ORAL ; 1 DAILY AFTER
     Route: 048
     Dates: start: 20110706, end: 20110713

REACTIONS (4)
  - SKIN WARM [None]
  - HEART RATE INCREASED [None]
  - DRUG HYPERSENSITIVITY [None]
  - BLOOD PRESSURE INCREASED [None]
